FAERS Safety Report 8810372 (Version 3)
Quarter: 2013Q2

REPORT INFORMATION
  Report Type: Spontaneous
  Country: US (occurrence: US)
  Receive Date: 20120926
  Receipt Date: 20130606
  Transmission Date: 20140414
  Serious: Yes (Other)
  Sender: FDA-Public Use
  Company Number: US-009507513-1209USA000201

PATIENT
  Sex: Male

DRUGS (3)
  1. PEG-INTRON [Suspect]
     Indication: HEPATITIS C
     Dosage: VIAL
     Route: 058
     Dates: start: 20120625, end: 20130225
  2. REBETOL [Suspect]
     Indication: HEPATITIS C
     Dosage: UNK
     Route: 048
     Dates: start: 20120625, end: 20130225
  3. VICTRELIS [Suspect]
     Indication: HEPATITIS C
     Dosage: UNK
     Route: 048
     Dates: start: 20120709, end: 20130225

REACTIONS (35)
  - Blindness unilateral [Unknown]
  - Renal vein occlusion [Unknown]
  - Retinal vein thrombosis [Unknown]
  - Fatigue [Unknown]
  - Bedridden [Unknown]
  - Feeling cold [Unknown]
  - Mood altered [Unknown]
  - Daydreaming [Unknown]
  - Aversion [Unknown]
  - Feeling cold [Unknown]
  - Vein disorder [Unknown]
  - Eye disorder [Unknown]
  - Back pain [Unknown]
  - Large intestine polyp [Unknown]
  - Pollakiuria [Unknown]
  - Hypoaesthesia [Unknown]
  - Tremor [Unknown]
  - Insomnia [Unknown]
  - Swelling [Unknown]
  - Pollakiuria [Unknown]
  - Hypoaesthesia [Unknown]
  - Back pain [Unknown]
  - Malaise [Unknown]
  - Pyrexia [Unknown]
  - Haemoglobin decreased [Unknown]
  - Asthenia [Unknown]
  - Fatigue [Unknown]
  - Dehydration [Unknown]
  - Pruritus [Unknown]
  - Dry skin [Unknown]
  - Weight decreased [Unknown]
  - Pyrexia [Unknown]
  - Insomnia [Unknown]
  - Asthenia [Unknown]
  - Malaise [Unknown]
